FAERS Safety Report 13138418 (Version 1)
Quarter: 2017Q1

REPORT INFORMATION
  Report Type: Spontaneous
  Country: US (occurrence: US)
  Receive Date: 20170123
  Receipt Date: 20170123
  Transmission Date: 20170428
  Serious: Yes (Hospitalization, Other)
  Sender: FDA-Public Use
  Company Number: None

PATIENT
  Age: 55 Year
  Sex: Female
  Weight: 45.4 kg

DRUGS (15)
  1. PROLIA [Suspect]
     Active Substance: DENOSUMAB
     Indication: OSTEOPOROSIS
     Dosage: ONE INJECTION EVERY 6 MONTHS INJECTION ?
     Dates: start: 20160720
  2. TRAZADON [Concomitant]
  3. SIMVASTATIN. [Concomitant]
     Active Substance: SIMVASTATIN
  4. KRILL OIL [Concomitant]
     Active Substance: DIETARY SUPPLEMENT
  5. INTESTINAL EDGE [Concomitant]
  6. OXYCODONE [Concomitant]
     Active Substance: OXYCODONE
  7. LUMIGAN [Concomitant]
     Active Substance: BIMATOPROST
  8. PROTONIX [Concomitant]
     Active Substance: PANTOPRAZOLE SODIUM
  9. TYLENOL [Concomitant]
     Active Substance: ACETAMINOPHEN
  10. VIT. D, FOLIC ACID, VIT. B - COMPLEX [Concomitant]
     Active Substance: FOLIC ACID\VITAMINS
  11. KRATOM [Concomitant]
     Active Substance: HERBALS
  12. ASPIRIN. [Concomitant]
     Active Substance: ASPIRIN
  13. CARAFATE [Concomitant]
     Active Substance: SUCRALFATE
  14. CELEXA [Concomitant]
     Active Substance: CITALOPRAM HYDROBROMIDE
  15. ALEVE [Concomitant]
     Active Substance: NAPROXEN SODIUM

REACTIONS (6)
  - Abdominal distension [None]
  - Feeling abnormal [None]
  - Drug ineffective [None]
  - Abdominal discomfort [None]
  - Blood pressure increased [None]
  - Abdominal pain [None]

NARRATIVE: CASE EVENT DATE: 20160721
